FAERS Safety Report 20315846 (Version 1)
Quarter: 2022Q1

REPORT INFORMATION
  Report Type: Spontaneous
  Country: US (occurrence: None)
  Receive Date: 20220110
  Receipt Date: 20220110
  Transmission Date: 20220424
  Serious: Yes (Other)
  Sender: FDA-Public Use
  Company Number: US-ROCHE-2882956

PATIENT
  Sex: Male
  Weight: 77.634 kg

DRUGS (4)
  1. RITUXAN [Suspect]
     Active Substance: RITUXIMAB
     Indication: Splenic marginal zone lymphoma
     Route: 042
     Dates: start: 20191204, end: 202001
  2. RITUXAN [Suspect]
     Active Substance: RITUXIMAB
     Dosage: 2 DAYS IN A ROW ONCE A MONTH
     Route: 042
     Dates: start: 202001, end: 20200709
  3. PFIZER-BIONTECH COVID-19 VACCINE [Concomitant]
     Active Substance: TOZINAMERAN
     Dates: start: 202101
  4. PFIZER-BIONTECH COVID-19 VACCINE [Concomitant]
     Active Substance: TOZINAMERAN
     Dates: start: 20210209

REACTIONS (2)
  - Immunodeficiency [Unknown]
  - Drug ineffective [Unknown]
